FAERS Safety Report 24731982 (Version 3)
Quarter: 2025Q1

REPORT INFORMATION
  Report Type: Spontaneous
  Country: KR (occurrence: KR)
  Receive Date: 20241213
  Receipt Date: 20250212
  Transmission Date: 20250408
  Serious: No
  Sender: PFIZER
  Company Number: KR-PFIZER INC-202400319821

PATIENT
  Age: 11 Year

DRUGS (1)
  1. GENOTROPIN [Suspect]
     Active Substance: SOMATROPIN
     Dates: start: 202309

REACTIONS (1)
  - Device leakage [Unknown]
